FAERS Safety Report 4571257-1 (Version None)
Quarter: 2005Q1

REPORT INFORMATION
  Report Type: 
  Country: None (occurrence: None)
  Receive Date: 20050202
  Receipt Date: 20050120
  Transmission Date: 20050727
  Serious: Yes (Death)
  Sender: FDA-Public Use
  Company Number: VISP-PR-0501S-0021

PATIENT
  Age: 39 Year
  Sex: Female

DRUGS (3)
  1. VISIPAQUE [Suspect]
     Indication: PULMONARY EMBOLISM
     Dosage: 150 ML, SINGLE DOSE, IV
     Route: 042
     Dates: start: 20040917, end: 20040917
  2. TYLENOL [Concomitant]
  3. UNSPECIFIED HIGHLY ACTIVE ANTIRETROVIRAL TREATMENT (HAART) THERAPY [Concomitant]

REACTIONS (11)
  - ACIDOSIS [None]
  - BLOOD PRESSURE INCREASED [None]
  - BODY TEMPERATURE DECREASED [None]
  - CHEST PAIN [None]
  - COUGH [None]
  - DYSPNOEA [None]
  - HEART RATE INCREASED [None]
  - HYPOXIA [None]
  - OEDEMA PERIPHERAL [None]
  - PULSE ABSENT [None]
  - RASH PAPULAR [None]
